FAERS Safety Report 8724544 (Version 2)
Quarter: 2012Q4

REPORT INFORMATION
  Report Type: 
  Country: US (occurrence: US)
  Receive Date: 20120815
  Receipt Date: 20121115
  Transmission Date: 20130627
  Serious: No
  Sender: FDA-Public Use
  Company Number: US-FRI-1000037731

PATIENT
  Age: 91 None
  Sex: Female
  Weight: 53 kg

DRUGS (9)
  1. DALIRESP [Suspect]
     Indication: CHRONIC OBSTRUCTIVE PULMONARY DISEASE
     Dosage: 500 mcg
     Route: 048
     Dates: start: 20120621, end: 20120621
  2. BOOST [Concomitant]
  3. FLONASE [Concomitant]
  4. CENTRUM SILVER [Concomitant]
  5. AMLODIPINE [Concomitant]
     Dosage: 2.5 mg
  6. ADVAIR [Concomitant]
     Indication: CHRONIC OBSTRUCTIVE PULMONARY DISEASE
  7. SPIRIVA [Concomitant]
     Indication: CHRONIC OBSTRUCTIVE PULMONARY DISEASE
  8. NEBULIZER NOS [Concomitant]
  9. PROTONIX [Concomitant]
     Indication: ABDOMINAL DISCOMFORT
     Dosage: 40 mg

REACTIONS (4)
  - Rash maculo-papular [Recovered/Resolved]
  - Decreased appetite [Unknown]
  - Weight decreased [Not Recovered/Not Resolved]
  - Rash generalised [None]
